FAERS Safety Report 6793318-9 (Version None)
Quarter: 2010Q2

REPORT INFORMATION
  Report Type: 
  Country: None (occurrence: None)
  Receive Date: 20100624
  Receipt Date: 20100610
  Transmission Date: 20101027
  Serious: Yes (Other)
  Sender: FDA-Public Use
  Company Number: US-MYLANLABS-2009S1020095

PATIENT
  Age: 23 Year
  Sex: Male
  Weight: 85.28 kg

DRUGS (7)
  1. CLOZAPINE [Suspect]
     Indication: PSYCHOTIC DISORDER
     Route: 048
     Dates: end: 20091209
  2. CLOZAPINE [Suspect]
     Route: 048
     Dates: start: 20091210, end: 20090101
  3. CLOZAPINE [Suspect]
     Route: 048
     Dates: start: 20090101
  4. DOCUSATE [Concomitant]
     Route: 048
     Dates: start: 20090612
  5. GABAPENTIN [Concomitant]
     Route: 048
     Dates: start: 20091013
  6. MIRALAX [Concomitant]
     Route: 048
     Dates: start: 20090613
  7. MULTI-VITAMIN [Concomitant]
     Route: 048
     Dates: start: 20091020

REACTIONS (1)
  - GRANULOCYTOPENIA [None]
